FAERS Safety Report 4827780-5 (Version None)
Quarter: 2005Q4

REPORT INFORMATION
  Report Type: 
  Country: None (occurrence: None)
  Receive Date: 20051110
  Receipt Date: 20051107
  Transmission Date: 20060501
  Serious: Yes (Death, Hospitalization)
  Sender: FDA-Public Use
  Company Number: US-2005-008465

PATIENT
  Age: 66 Year
  Sex: Male
  Weight: 84 kg

DRUGS (1)
  1. BETASERON [Suspect]
     Indication: RELAPSING-REMITTING MULTIPLE SCLEROSIS
     Dosage: 8 MIU, EVERY 2D, SUBCUTANEOUS
     Route: 058
     Dates: start: 20021101, end: 20050401

REACTIONS (6)
  - ANOXIC ENCEPHALOPATHY [None]
  - GASTROINTESTINAL HAEMORRHAGE [None]
  - HYPOVOLAEMIA [None]
  - LOSS OF CONSCIOUSNESS [None]
  - ORGAN FAILURE [None]
  - RENAL FAILURE [None]
